FAERS Safety Report 24642925 (Version 2)
Quarter: 2024Q4

REPORT INFORMATION
  Report Type: Report from Study
  Country: US (occurrence: US)
  Receive Date: 20241120
  Receipt Date: 20241210
  Transmission Date: 20250115
  Serious: Yes (Other)
  Sender: TAKEDA
  Company Number: US-TAKEDA-2024TUS115291

PATIENT
  Age: 50 Year
  Sex: Male

DRUGS (17)
  1. TEDUGLUTIDE [Suspect]
     Active Substance: TEDUGLUTIDE
     Indication: Short-bowel syndrome
     Dosage: 0.15 MILLILITER, QD
     Dates: start: 20241108
  2. TEDUGLUTIDE [Suspect]
     Active Substance: TEDUGLUTIDE
     Dosage: 1.5 MILLIGRAM, QD
  3. TEDUGLUTIDE [Suspect]
     Active Substance: TEDUGLUTIDE
  4. TEDUGLUTIDE [Suspect]
     Active Substance: TEDUGLUTIDE
  5. TRAZODONE HCL [Concomitant]
     Active Substance: TRAZODONE HYDROCHLORIDE
     Dosage: UNK
  6. THIAMINE HYDROCHLORIDE [Concomitant]
     Active Substance: THIAMINE HYDROCHLORIDE
     Dosage: UNK
  7. TACROLIMUS [Concomitant]
     Active Substance: TACROLIMUS
     Dosage: UNK
  8. SODIUM CHLORIDE [Concomitant]
     Active Substance: SODIUM CHLORIDE
     Dosage: UNK
  9. LYRICA [Concomitant]
     Active Substance: PREGABALIN
     Dosage: UNK
  10. PREDNISOLONE [Concomitant]
     Active Substance: PREDNISOLONE
     Dosage: UNK
  11. ONDANSETRON HYDROCHLORIDE [Concomitant]
     Active Substance: ONDANSETRON HYDROCHLORIDE
     Dosage: UNK
  12. MIRTAZAPINE [Concomitant]
     Active Substance: MIRTAZAPINE
     Dosage: UNK
  13. KEPPRA [Concomitant]
     Active Substance: LEVETIRACETAM
     Dosage: UNK
  14. ACETAMINOPHEN\HYDROCODONE [Concomitant]
     Active Substance: ACETAMINOPHEN\HYDROCODONE
     Dosage: UNK
  15. VITAMIN D3 [Concomitant]
     Active Substance: CHOLECALCIFEROL
     Dosage: UNK
  16. ATROPINE\DIPHENOXYLATE [Concomitant]
     Active Substance: ATROPINE\DIPHENOXYLATE
     Dosage: UNK
  17. BACLOFEN [Concomitant]
     Active Substance: BACLOFEN
     Dosage: UNK

REACTIONS (7)
  - Thrombosis [Unknown]
  - Frustration tolerance decreased [Unknown]
  - Product dose omission issue [Unknown]
  - Product use issue [Unknown]
  - Allergic sinusitis [Unknown]
  - Weight increased [Unknown]
  - Appetite disorder [Recovering/Resolving]

NARRATIVE: CASE EVENT DATE: 20241111
